FAERS Safety Report 6982140-6 (Version None)
Quarter: 2010Q3

REPORT INFORMATION
  Report Type: 
  Country: None (occurrence: None)
  Receive Date: 20100914
  Receipt Date: 20091215
  Transmission Date: 20110219
  Serious: No
  Sender: FDA-Public Use
  Company Number: US-PFIZER INC-2009288572

PATIENT
  Sex: Female

DRUGS (5)
  1. LYRICA [Suspect]
     Indication: NEURALGIA
     Dosage: 50 MG, 2X/DAY
     Route: 048
     Dates: start: 20090201, end: 20090901
  2. LEXAPRO [Concomitant]
     Dosage: UNK
  3. VICODIN [Concomitant]
     Dosage: UNK
  4. ATIVAN [Concomitant]
     Dosage: UNK
  5. SIMVASTATIN [Concomitant]
     Dosage: UNK

REACTIONS (7)
  - AFFECTIVE DISORDER [None]
  - CRYING [None]
  - HEADACHE [None]
  - NAUSEA [None]
  - NEURALGIA [None]
  - VOMITING [None]
  - WHITE BLOOD CELL COUNT INCREASED [None]
